FAERS Safety Report 13143356 (Version 1)
Quarter: 2017Q1

REPORT INFORMATION
  Report Type: Spontaneous
  Country: US (occurrence: US)
  Receive Date: 20170124
  Receipt Date: 20170124
  Transmission Date: 20170428
  Serious: Yes (Hospitalization, Disabling)
  Sender: FDA-Public Use
  Company Number: None

PATIENT
  Age: 89 Year
  Sex: Female
  Weight: 54.43 kg

DRUGS (3)
  1. SODIUM BICARBONATE. [Suspect]
     Active Substance: SODIUM BICARBONATE
     Indication: RENAL DISORDER
     Dosage: ?          QUANTITY:-IST ANY RELEVANT TESTS O;?
     Route: 048
     Dates: start: 20161026, end: 20161215
  2. LABETOL [Concomitant]
  3. CALCITOL [Concomitant]

REACTIONS (3)
  - Dyspnoea [None]
  - Arthralgia [None]
  - Gait disturbance [None]

NARRATIVE: CASE EVENT DATE: 20161120
